FAERS Safety Report 15464141 (Version 2)
Quarter: 2018Q4

REPORT INFORMATION
  Report Type: Spontaneous
  Country: US (occurrence: US)
  Receive Date: 20181004
  Receipt Date: 20181008
  Transmission Date: 20190204
  Serious: Yes (Hospitalization, Other)
  Sender: FDA-Public Use
  Company Number: US-STRIDES ARCOLAB LIMITED-2018SP008512

PATIENT
  Age: 57 Year
  Sex: Female

DRUGS (6)
  1. IBUPROFEN. [Suspect]
     Active Substance: IBUPROFEN
     Indication: PAIN MANAGEMENT
     Dosage: 800 MG, EVERY 8 HOURS, TOTAL OF THREE DOSES ON DAY 5 AND 6
     Route: 065
  2. VANCOMYCIN [Suspect]
     Active Substance: VANCOMYCIN
     Indication: INFECTION
     Dosage: 9 G IN ANTIBIOTIC-IMPREGNATED CEMENT SPACE
  3. PIPERACILLIN/TAZOBACTAM [Suspect]
     Active Substance: PIPERACILLIN SODIUM\TAZOBACTAM SODIUM
     Indication: INFECTION
     Dosage: 3.375 G, EVERY 8 HRS, THROUGH DAY SIX
     Route: 042
  4. TOBRAMYCIN. [Suspect]
     Active Substance: TOBRAMYCIN
     Indication: INFECTION
     Dosage: 7.2 G IN ANTIBIOTIC-IMPREGNATED CEMENT SPACE
  5. GENTAMICIN. [Suspect]
     Active Substance: GENTAMICIN
     Indication: INFECTION
     Dosage: 1.5 G, ANTIBIOTIC-IMPREGNATED CEMENT SPACER
  6. VANCOMYCIN [Suspect]
     Active Substance: VANCOMYCIN
     Dosage: THROUGH DAY 20 FOR GOAL TROUGH 15-20 MG/L
     Route: 042

REACTIONS (3)
  - Renal tubular necrosis [Recovered/Resolved]
  - Nephropathy toxic [Recovered/Resolved]
  - Acute kidney injury [Recovered/Resolved]
